FAERS Safety Report 23643119 (Version 7)
Quarter: 2024Q3

REPORT INFORMATION
  Report Type: Spontaneous
  Country: CA (occurrence: CA)
  Receive Date: 20240318
  Receipt Date: 20240808
  Transmission Date: 20241016
  Serious: Yes (Death, Hospitalization, Other)
  Sender: PFIZER
  Company Number: CA-PFIZER INC-PV202400035451

PATIENT
  Age: 60 Year
  Sex: Male

DRUGS (4)
  1. MEKTOVI [Suspect]
     Active Substance: BINIMETINIB
     Indication: Malignant melanoma
     Dosage: 45 MG, 2X/DAY
     Dates: start: 20240202
  2. MEKTOVI [Suspect]
     Active Substance: BINIMETINIB
     Indication: BRAF V600E mutation positive
     Dosage: 30 MG, 2X/DAY
  3. BRAFTOVI [Suspect]
     Active Substance: ENCORAFENIB
     Indication: Malignant melanoma
     Dosage: 450 MG, 1X/DAY
     Dates: start: 202402
  4. BRAFTOVI [Suspect]
     Active Substance: ENCORAFENIB
     Indication: BRAF V600E mutation positive
     Dosage: 300 MG, 1X/DAY

REACTIONS (5)
  - Death [Fatal]
  - Illness [Unknown]
  - Cystoid macular oedema [Recovering/Resolving]
  - Nausea [Unknown]
  - Vomiting [Unknown]

NARRATIVE: CASE EVENT DATE: 20240802
